FAERS Safety Report 6294420-0 (Version None)
Quarter: 2009Q3

REPORT INFORMATION
  Report Type: 
  Country: None (occurrence: None)
  Receive Date: 20090803
  Receipt Date: 20090721
  Transmission Date: 20100115
  Serious: Yes (Other)
  Sender: FDA-Public Use
  Company Number: CA-ROCHE-645291

PATIENT
  Age: 60 Year
  Sex: Male

DRUGS (1)
  1. TAMIFLU [Suspect]
     Indication: INFECTION PROPHYLAXIS
     Dosage: DOSE: SMALLER THAN RECOMMENDED DOSE (NOT OTHERWISE SPECIFIED)
     Route: 065
     Dates: start: 20090101, end: 20090101

REACTIONS (1)
  - PATHOGEN RESISTANCE [None]
